FAERS Safety Report 16233110 (Version 1)
Quarter: 2019Q2

REPORT INFORMATION
  Report Type: Spontaneous
  Country: US (occurrence: US)
  Receive Date: 20190319
  Receipt Date: 20190319
  Transmission Date: 20190711
  Serious: Yes (Other)
  Sender: FDA-Public Use
  Company Number: None

PATIENT

DRUGS (1)
  1. SELSUN BLUE NOS [Suspect]
     Active Substance: HYDROCORTISONE\PYRITHIONE ZINC\SALICYLIC ACID\SELENIUM SULFIDE
     Dates: start: 20181108, end: 20181109

REACTIONS (3)
  - Rash macular [None]
  - Rash erythematous [None]
  - Psoriasis [None]

NARRATIVE: CASE EVENT DATE: 20181108
